FAERS Safety Report 8398132-9 (Version None)
Quarter: 2012Q2

REPORT INFORMATION
  Report Type: 
  Country: None (occurrence: None)
  Receive Date: 20120525
  Receipt Date: 20110120
  Transmission Date: 20120825
  Serious: Yes (Other)
  Sender: FDA-Public Use
  Company Number: ADE 12-032

PATIENT

DRUGS (3)
  1. HEPARIN SODIUM INJ [Suspect]
  2. HEPARIN SODIUM INJ [Suspect]
  3. HEPARIN SODIUM INJ [Suspect]

REACTIONS (2)
  - COAGULATION TIME ABNORMAL [None]
  - DRUG EFFECT DECREASED [None]
